FAERS Safety Report 24351088 (Version 1)
Quarter: 2024Q3

REPORT INFORMATION
  Report Type: Report from Study
  Country: RO (occurrence: RO)
  Receive Date: 20240923
  Receipt Date: 20240923
  Transmission Date: 20241016
  Serious: No
  Sender: ROCHE
  Company Number: RO-ROCHE-2561415

PATIENT
  Age: 54 Year
  Sex: Female
  Weight: 93.0 kg

DRUGS (2)
  1. HERCEPTIN [Suspect]
     Active Substance: TRASTUZUMAB
     Indication: Breast cancer
     Route: 042
  2. HERCEPTIN [Suspect]
     Active Substance: TRASTUZUMAB
     Indication: Breast cancer
     Route: 058

REACTIONS (8)
  - Dizziness [Unknown]
  - Increased appetite [Not Recovered/Not Resolved]
  - Malaise [Unknown]
  - Fatigue [Unknown]
  - Overweight [Unknown]
  - Dyspnoea [Unknown]
  - Thyroid disorder [Unknown]
  - Blood pressure abnormal [Unknown]
